FAERS Safety Report 13808741 (Version 5)
Quarter: 2018Q1

REPORT INFORMATION
  Report Type: Report from Study
  Country: US (occurrence: US)
  Receive Date: 20170728
  Receipt Date: 20180125
  Transmission Date: 20180508
  Serious: No
  Sender: FDA-Public Use
  Company Number: US-AMGEN-USASL2017061630

PATIENT
  Age: 84 Year
  Sex: Female

DRUGS (1)
  1. REPATHA [Suspect]
     Active Substance: EVOLOCUMAB
     Indication: HYPERCHOLESTEROLAEMIA
     Dosage: 140 MG, Q2WK
     Route: 065
     Dates: start: 2016

REACTIONS (6)
  - Asthenia [Not Recovered/Not Resolved]
  - Muscular weakness [Unknown]
  - Cough [Unknown]
  - Pain in extremity [Unknown]
  - Product use complaint [Unknown]
  - Thyroid disorder [Unknown]
